FAERS Safety Report 25769238 (Version 1)
Quarter: 2025Q3

REPORT INFORMATION
  Report Type: Spontaneous
  Country: US (occurrence: US)
  Receive Date: 20250906
  Receipt Date: 20250906
  Transmission Date: 20251020
  Serious: Yes (Hospitalization)
  Sender: ACCORD
  Company Number: US-Accord-502667

PATIENT
  Sex: Female

DRUGS (7)
  1. CARBOPLATIN [Suspect]
     Active Substance: CARBOPLATIN
     Indication: Medulloblastoma
  2. CISPLATIN [Suspect]
     Active Substance: CISPLATIN
     Indication: Medulloblastoma
  3. ETOPOSIDE [Suspect]
     Active Substance: ETOPOSIDE
     Indication: Medulloblastoma
  4. METHOTREXATE [Suspect]
     Active Substance: METHOTREXATE
     Indication: Medulloblastoma
  5. CYCLOPHOSPHAMIDE [Suspect]
     Active Substance: CYCLOPHOSPHAMIDE
     Indication: Medulloblastoma
  6. THIOTEPA [Suspect]
     Active Substance: THIOTEPA
     Indication: Medulloblastoma
  7. VINCRISTINE [Suspect]
     Active Substance: VINCRISTINE
     Indication: Medulloblastoma

REACTIONS (2)
  - Human herpesvirus 6 infection reactivation [Recovered/Resolved with Sequelae]
  - Off label use [Unknown]
